FAERS Safety Report 9492434 (Version 1)
Quarter: 2013Q3

REPORT INFORMATION
  Report Type: Spontaneous
  Country: US (occurrence: US)
  Receive Date: 20130830
  Receipt Date: 20130830
  Transmission Date: 20140515
  Serious: No
  Sender: FDA-Public Use
  Company Number: US-TEVA-428252USA

PATIENT
  Age: 85 Year
  Sex: Male

DRUGS (4)
  1. PROAIR HFA [Suspect]
  2. ASPIRIN [Concomitant]
  3. FINASTERIDE [Concomitant]
  4. VITAMINS [Concomitant]

REACTIONS (1)
  - Drug ineffective [Unknown]
